FAERS Safety Report 17101710 (Version 1)
Quarter: 2019Q4

REPORT INFORMATION
  Report Type: Spontaneous
  Country: US (occurrence: US)
  Receive Date: 20191202
  Receipt Date: 20191202
  Transmission Date: 20200122
  Serious: No
  Sender: FDA-Public Use
  Company Number: US-BAYER-2019-217329

PATIENT
  Age: 46 Year
  Sex: Male

DRUGS (1)
  1. GADAVIST [Suspect]
     Active Substance: GADOBUTROL
     Indication: MAGNETIC RESONANCE IMAGING
     Dosage: 0.1 MG/KG, ONCE
     Dates: start: 20191007, end: 20191007

REACTIONS (1)
  - Urticaria [None]

NARRATIVE: CASE EVENT DATE: 20191007
